FAERS Safety Report 5819461-6 (Version None)
Quarter: 2008Q3

REPORT INFORMATION
  Report Type: 
  Country: None (occurrence: None)
  Receive Date: 20080723
  Receipt Date: 20080711
  Transmission Date: 20090109
  Serious: Yes (Other)
  Sender: FDA-Public Use
  Company Number: JP-SANOFI-SYNTHELABO-A01200807503

PATIENT
  Sex: Female

DRUGS (4)
  1. MYSLEE [Suspect]
     Indication: SUICIDE ATTEMPT
     Route: 048
  2. DETERGENT NOS [Concomitant]
     Indication: SUICIDE ATTEMPT
     Route: 048
  3. MYSLEE [Concomitant]
     Route: 048
  4. MYSLEE [Concomitant]
     Route: 048

REACTIONS (2)
  - INTENTIONAL OVERDOSE [None]
  - RESPIRATORY ARREST [None]
